FAERS Safety Report 5554266-5 (Version None)
Quarter: 2007Q4

REPORT INFORMATION
  Report Type: 
  Country: None (occurrence: None)
  Receive Date: 20071213
  Receipt Date: 20071211
  Transmission Date: 20080405
  Serious: Yes (Hospitalization)
  Sender: FDA-Public Use
  Company Number: A0698358A

PATIENT
  Age: 52 Year
  Sex: Female

DRUGS (2)
  1. AVANDIA [Suspect]
     Route: 048
     Dates: start: 20060101, end: 20060101
  2. SYNTHROID [Concomitant]

REACTIONS (3)
  - CHEST PAIN [None]
  - DYSPNOEA [None]
  - MALAISE [None]
